FAERS Safety Report 19701412 (Version 10)
Quarter: 2021Q4

REPORT INFORMATION
  Report Type: Spontaneous
  Country: JP (occurrence: JP)
  Receive Date: 20210814
  Receipt Date: 20211120
  Transmission Date: 20220303
  Serious: Yes (Hospitalization, Other)
  Sender: FDA-Public Use
  Company Number: JP-UNITED THERAPEUTICS-UNT-2021-006834

PATIENT
  Age: 32 Year
  Sex: Female
  Weight: 58 kg

DRUGS (4)
  1. REMODULIN [Suspect]
     Active Substance: TREPROSTINIL
     Indication: Pulmonary arterial hypertension
     Dosage: UNK, CONTINUING
     Route: 041
     Dates: start: 20210308, end: 202105
  2. REMODULIN [Suspect]
     Active Substance: TREPROSTINIL
     Indication: Pulmonary arterial hypertension
     Dosage: UNK, CONTINUING
     Route: 058
     Dates: start: 202105
  3. PREDONINE [Concomitant]
     Active Substance: PREDNISOLONE
     Indication: Systemic lupus erythematosus
     Dosage: UNK
     Route: 065
  4. CYMBALTA [Concomitant]
     Active Substance: DULOXETINE HYDROCHLORIDE
     Indication: Pain
     Dosage: UNK
     Route: 065

REACTIONS (25)
  - Iron deficiency anaemia [Recovering/Resolving]
  - Nausea [Recovering/Resolving]
  - Pain in extremity [Unknown]
  - Amenorrhoea [Unknown]
  - Injection site pain [Recovering/Resolving]
  - Injection site erythema [Recovering/Resolving]
  - Injection site vesicles [Unknown]
  - Herpes zoster [Unknown]
  - Injection site induration [Unknown]
  - Injection site urticaria [Unknown]
  - Malaise [Unknown]
  - Dizziness [Unknown]
  - Axillary pain [Unknown]
  - Chest pain [Unknown]
  - Decreased appetite [Unknown]
  - Injection site discharge [Unknown]
  - Injection site extravasation [Unknown]
  - Eye discharge [Recovering/Resolving]
  - Peripheral venous disease [Unknown]
  - Nausea [Recovering/Resolving]
  - Vomiting [Recovering/Resolving]
  - Decreased appetite [Recovering/Resolving]
  - Injection site haemorrhage [Unknown]
  - Injection site deformation [Recovering/Resolving]
  - Blood pressure decreased [Unknown]

NARRATIVE: CASE EVENT DATE: 20210101
